FAERS Safety Report 7893007-3 (Version None)
Quarter: 2011Q4

REPORT INFORMATION
  Report Type: 
  Country: None (occurrence: None)
  Receive Date: 20111104
  Receipt Date: 20111028
  Transmission Date: 20120403
  Serious: Yes (Other)
  Sender: FDA-Public Use
  Company Number: AU-B.I. PHARMACEUTICALS,INC./RIDGEFIELD-2011-AU-01992AU

PATIENT
  Age: 72 Year
  Sex: Female
  Weight: 74 kg

DRUGS (7)
  1. ZYLOPRIM [Concomitant]
     Dosage: 300 MG
  2. DIGOXIN [Concomitant]
     Dosage: 250 MCG
  3. ATACAND [Concomitant]
  4. PRADAXA [Suspect]
     Dosage: 300 MG
     Dates: start: 20110722
  5. INDAPAMIDE [Concomitant]
     Dosage: 1.5 MG
  6. ISOPTIN [Concomitant]
  7. METFORMIN HCL [Concomitant]
     Dosage: 1000 MG

REACTIONS (4)
  - GLOMERULAR FILTRATION RATE DECREASED [None]
  - WEIGHT DECREASED [None]
  - BREAST CANCER [None]
  - BLOOD CREATINE PHOSPHOKINASE INCREASED [None]
